FAERS Safety Report 18276620 (Version 1)
Quarter: 2020Q3

REPORT INFORMATION
  Report Type: Spontaneous
  Country: US (occurrence: US)
  Receive Date: 20200917
  Receipt Date: 20200917
  Transmission Date: 20201103
  Serious: Yes (Hospitalization)
  Sender: FDA-Public Use
  Company Number: US-ASTRAZENECA-2020SF17734

PATIENT
  Age: 19072 Day
  Sex: Female
  Weight: 113.4 kg

DRUGS (3)
  1. FARXIGA [Suspect]
     Active Substance: DAPAGLIFLOZIN PROPANEDIOL
     Indication: TYPE 2 DIABETES MELLITUS
     Route: 048
     Dates: start: 201904, end: 20190402
  2. LISINIPRIL [Concomitant]
     Active Substance: LISINOPRIL
  3. HUMALOG [Concomitant]
     Active Substance: INSULIN LISPRO

REACTIONS (3)
  - Gangrene [Recovering/Resolving]
  - Renal failure [Recovering/Resolving]
  - Sepsis [Recovering/Resolving]

NARRATIVE: CASE EVENT DATE: 20190402
